FAERS Safety Report 8386800-4 (Version None)
Quarter: 2012Q2

REPORT INFORMATION
  Report Type: 
  Country: None (occurrence: None)
  Receive Date: 20120523
  Receipt Date: 20120510
  Transmission Date: 20120825
  Serious: Yes (Life-Threatening, Hospitalization, Other)
  Sender: FDA-Public Use
  Company Number: AUR-APL-2010-00397

PATIENT
  Age: 50 Year
  Sex: Female

DRUGS (1)
  1. METFORMIN HCL [Suspect]
     Indication: SUICIDE ATTEMPT
     Dosage: (40 DOSAGE FORMS), ORAL
     Route: 048

REACTIONS (20)
  - LACTIC ACIDOSIS [None]
  - CARDIOVASCULAR INSUFFICIENCY [None]
  - DEPRESSED LEVEL OF CONSCIOUSNESS [None]
  - SYSTEMIC INFLAMMATORY RESPONSE SYNDROME [None]
  - CAPILLARY LEAK SYNDROME [None]
  - RENAL FAILURE [None]
  - CONTINUOUS HAEMODIAFILTRATION [None]
  - AGITATION [None]
  - BODY TEMPERATURE DECREASED [None]
  - TACHYPNOEA [None]
  - COSTOVERTEBRAL ANGLE TENDERNESS [None]
  - PULMONARY OEDEMA [None]
  - SKIN DISCOLOURATION [None]
  - SUICIDE ATTEMPT [None]
  - RESPIRATORY FAILURE [None]
  - PLEURAL EFFUSION [None]
  - SOPOR [None]
  - BLOOD PRESSURE DECREASED [None]
  - OVERDOSE [None]
  - THYROID NEOPLASM [None]
